FAERS Safety Report 8453969 (Version 2)
Quarter: 2013Q1

REPORT INFORMATION
  Report Type: Spontaneous
  Country: US (occurrence: US)
  Receive Date: 20120312
  Receipt Date: 20130117
  Transmission Date: 20140127
  Serious: Yes (Life-Threatening, Hospitalization)
  Sender: FDA-Public Use
  Company Number: US-BAYER-2012-022814

PATIENT
  Age: 20 Year
  Sex: Female

DRUGS (3)
  1. YAZ [Suspect]
     Dosage: UNK
  2. YASMIN [Suspect]
     Dosage: UNK
  3. OCELLA [Suspect]
     Dosage: UNK

REACTIONS (9)
  - Pulmonary embolism [Recovered/Resolved]
  - Lung disorder [None]
  - Visual impairment [None]
  - Anxiety [None]
  - Anhedonia [None]
  - General physical health deterioration [None]
  - Emotional distress [None]
  - Injury [Recovered/Resolved]
  - Pain [Recovered/Resolved]
